FAERS Safety Report 7557922-2 (Version None)
Quarter: 2011Q2

REPORT INFORMATION
  Report Type: 
  Country: None (occurrence: None)
  Receive Date: 20110620
  Receipt Date: 20110608
  Transmission Date: 20111010
  Serious: Yes (Other)
  Sender: FDA-Public Use
  Company Number: B0699945A

PATIENT
  Sex: Female
  Weight: 60 kg

DRUGS (4)
  1. AVANDIA [Suspect]
     Route: 065
     Dates: start: 20080401
  2. APROVEL [Concomitant]
     Dates: start: 19980101, end: 19980101
  3. GLUCOPHAGE [Concomitant]
     Dates: start: 20090101
  4. GLICLAZIDE [Concomitant]
     Dosage: 160MCG PER DAY

REACTIONS (4)
  - HYPERGLYCAEMIA [None]
  - BREAST NEOPLASM [None]
  - BREAST MASS [None]
  - BLOOD PRESSURE INCREASED [None]
